FAERS Safety Report 8229062-0 (Version None)
Quarter: 2012Q1

REPORT INFORMATION
  Report Type: 
  Country: None (occurrence: None)
  Receive Date: 20120322
  Receipt Date: 20120307
  Transmission Date: 20120608
  Serious: Yes (Death, Life-Threatening)
  Sender: FDA-Public Use
  Company Number: AU-ROCHE-1042016

PATIENT
  Sex: Male
  Weight: 76 kg

DRUGS (11)
  1. BEVACIZUMAB [Suspect]
     Indication: ANAPLASTIC ASTROCYTOMA
     Route: 042
     Dates: start: 20111222, end: 20111229
  2. LAMOTRIGINE [Concomitant]
     Indication: CONVULSION
     Route: 048
     Dates: start: 19990101, end: 20111230
  3. TEMOZOLOMIDE [Concomitant]
     Indication: ANAPLASTIC ASTROCYTOMA
     Route: 048
  4. TOPIRAMATE [Concomitant]
     Indication: CONVULSION
     Route: 048
     Dates: start: 20080501, end: 20111230
  5. TEMOZOLOMIDE [Concomitant]
     Indication: MIXED OLIGO-ASTROCYTOMA
  6. LEVETIRACETAM [Concomitant]
     Indication: CONVULSION
     Route: 048
     Dates: start: 20090301, end: 20111230
  7. LEVETIRACETAM [Concomitant]
     Dates: end: 20120108
  8. DEXAMETHASONE [Concomitant]
     Route: 048
     Dates: start: 20111229
  9. BEVACIZUMAB [Suspect]
     Indication: MIXED OLIGO-ASTROCYTOMA
  10. VALPROATE SODIUM [Concomitant]
     Indication: CONVULSION
     Route: 048
     Dates: start: 19980101, end: 20111230
  11. DEXAMETHASONE [Concomitant]
     Dosage: 4 MG MANE
     Route: 048
     Dates: start: 20111229, end: 20111229

REACTIONS (2)
  - DISSEMINATED INTRAVASCULAR COAGULATION [None]
  - CEREBRAL HAEMORRHAGE [None]
